FAERS Safety Report 9875055 (Version 1)
Quarter: 2014Q1

REPORT INFORMATION
  Report Type: Spontaneous
  Country: US (occurrence: US)
  Receive Date: 20140206
  Receipt Date: 20140206
  Transmission Date: 20141002
  Serious: Yes (Death, Other)
  Sender: FDA-Public Use
  Company Number: CHPA2014US001675

PATIENT
  Age: 67 Year
  Sex: Female

DRUGS (4)
  1. IBUPROFEN [Suspect]
     Route: 048
  2. ACETAMINOPHEN W/HYDROCODONE [Suspect]
     Route: 048
  3. CLONAZEPAM [Suspect]
     Route: 048
  4. ASPIRIN/CAFFEINE/SALICYLAMIDE [Suspect]
     Route: 048

REACTIONS (2)
  - Completed suicide [Fatal]
  - Cardio-respiratory arrest [Unknown]
